FAERS Safety Report 20602338 (Version 2)
Quarter: 2022Q2

REPORT INFORMATION
  Report Type: Spontaneous
  Country: DE (occurrence: DE)
  Receive Date: 20220316
  Receipt Date: 20220413
  Transmission Date: 20220720
  Serious: Yes (Hospitalization)
  Sender: FDA-Public Use
  Company Number: DE-NOVARTISPH-NVSC2022DE058618

PATIENT
  Weight: 116 kg

DRUGS (21)
  1. TRAMETINIB [Suspect]
     Active Substance: TRAMETINIB
     Indication: Product used for unknown indication
     Dosage: 2 MG(DAILY)
     Route: 065
     Dates: start: 20210909, end: 20220117
  2. DABRAFENIB [Suspect]
     Active Substance: DABRAFENIB
     Indication: Product used for unknown indication
     Dosage: 300 MG(DAILY)
     Route: 065
     Dates: start: 20210909, end: 20220117
  3. DABRAFENIB [Suspect]
     Active Substance: DABRAFENIB
     Dosage: UNK
     Route: 065
     Dates: start: 20220118
  4. ACETYLCYSTEINE [Concomitant]
     Active Substance: ACETYLCYSTEINE
     Indication: Cough
     Dosage: 600 MG, (DAILY / 1-0-0)
     Route: 048
  5. ACETYLCYSTEINE [Concomitant]
     Active Substance: ACETYLCYSTEINE
     Indication: Dyspnoea
  6. HYDROMORPHONE [Concomitant]
     Active Substance: HYDROMORPHONE
     Indication: Constipation
     Dosage: 04 MG, BID
     Route: 048
  7. MIRTAZAPINE [Concomitant]
     Active Substance: MIRTAZAPINE
     Indication: Adjustment disorder with depressed mood
     Dosage: 15 MG, QD (DAILY / 0-0-1)
     Route: 048
  8. AMBROXOL HYDROCHLORIDE [Concomitant]
     Active Substance: AMBROXOL HYDROCHLORIDE
     Indication: Cough
     Dosage: 30 MG (DAILY / 0-0-1)
     Route: 048
  9. AMBROXOL HYDROCHLORIDE [Concomitant]
     Active Substance: AMBROXOL HYDROCHLORIDE
     Indication: Dyspnoea
  10. METAMIZOLE [Concomitant]
     Active Substance: METAMIZOLE
     Indication: Product used for unknown indication
     Dosage: 500 MG(4X DAILY)
     Route: 065
  11. PANTOPRAZOLE SODIUM [Concomitant]
     Active Substance: PANTOPRAZOLE SODIUM
     Indication: Prophylaxis
     Dosage: 20 MG, QD (DAILY / 1-0-0)
     Route: 048
  12. TORSEMIDE [Concomitant]
     Active Substance: TORSEMIDE
     Indication: Coronary artery disease
     Dosage: 05 MG, BID
     Route: 048
  13. TORSEMIDE [Concomitant]
     Active Substance: TORSEMIDE
     Dosage: UNK (0-1-0)
     Route: 065
  14. CAMPHOR (SYNTHETIC)\MENTHOL [Concomitant]
     Active Substance: CAMPHOR (SYNTHETIC)\MENTHOL
     Indication: Cough
     Dosage: 20 DRP (AS NEEDED)
     Route: 048
  15. CAMPHOR (SYNTHETIC)\MENTHOL [Concomitant]
     Active Substance: CAMPHOR (SYNTHETIC)\MENTHOL
     Indication: Dyspnoea
  16. FENTANYL [Concomitant]
     Active Substance: FENTANYL
     Indication: Tumour pain
     Dosage: 100?G (UP TO 4X DAILY)
     Route: 048
  17. TAVOR [Concomitant]
     Indication: Tumour pain
     Dosage: 1 MG(4X DAILY)
     Route: 048
  18. DIMENHYDRINATE [Concomitant]
     Active Substance: DIMENHYDRINATE
     Indication: Nausea
     Dosage: 150 MG(AS NEEDED)
     Route: 054
  19. MOVICOL [Concomitant]
     Active Substance: POLYETHYLENE GLYCOL 3350\POTASSIUM CHLORIDE\SODIUM BICARBONATE\SODIUM CHLORIDE
     Indication: Product used for unknown indication
     Dosage: 13 G(DAILY)
     Route: 048
  20. NALOXONE HYDROCHLORIDE\TILIDINE HYDROCHLORIDE [Concomitant]
     Active Substance: NALOXONE HYDROCHLORIDE\TILIDINE HYDROCHLORIDE
     Indication: Product used for unknown indication
     Dosage: 50 MG, BID
     Route: 048
     Dates: start: 20210401
  21. LORAZEPAM [Concomitant]
     Active Substance: LORAZEPAM
     Indication: Product used for unknown indication
     Dosage: 1 MG(AS NEEDED)
     Route: 048
     Dates: start: 20210907

REACTIONS (5)
  - Gamma-glutamyltransferase increased [Recovering/Resolving]
  - Alanine aminotransferase increased [Recovering/Resolving]
  - Aspartate aminotransferase increased [Recovering/Resolving]
  - Blood bilirubin increased [Recovering/Resolving]
  - Blood alkaline phosphatase increased [Recovering/Resolving]

NARRATIVE: CASE EVENT DATE: 20220117
